FAERS Safety Report 10330709 (Version 1)
Quarter: 2014Q3

REPORT INFORMATION
  Report Type: Spontaneous
  Country: CA (occurrence: None)
  Receive Date: 20140717
  Receipt Date: 20140717
  Transmission Date: 20150326
  Serious: Yes (Life-Threatening)
  Sender: FDA-Public Use
  Company Number: FK201402748

PATIENT
  Age: 36 Year
  Sex: Female
  Weight: 58 kg

DRUGS (7)
  1. CEFUROXIME (MANUFACTURER UNKNOWN) (CEFUROXIME ) (CEFUROXIME ) [Suspect]
     Active Substance: CEFUROXIME
     Indication: PRODUCT USED FOR UNKNOWN INDICATION
     Dosage: 1 IN 12 HR
     Route: 048
  2. CELEXA (CITALOPRAM HYDROBROMIDE) (CITALOPRAM) [Concomitant]
  3. IMOVANE [Concomitant]
     Active Substance: ZOPICLONE
  4. NASONEX [Concomitant]
     Active Substance: MOMETASONE FUROATE
  5. TRI-CYCLEN LO (CILEST) [Concomitant]
  6. FLOVENT [Concomitant]
     Active Substance: FLUTICASONE PROPIONATE
  7. VENTOLIN [Concomitant]
     Active Substance: ALBUTEROL SULFATE

REACTIONS (3)
  - Diarrhoea [None]
  - Asthma [None]
  - Abdominal pain [None]
